FAERS Safety Report 4368694-7 (Version None)
Quarter: 2004Q2

REPORT INFORMATION
  Report Type: 
  Country: None (occurrence: None)
  Receive Date: 20040528
  Receipt Date: 20040507
  Transmission Date: 20050107
  Serious: Yes (Death)
  Sender: FDA-Public Use
  Company Number: JP-JNJFOC-20040501414

PATIENT
  Age: 70 Year
  Sex: Female

DRUGS (6)
  1. LEVOFLOXACIN [Suspect]
     Indication: ANTIBACTERIAL PROPHYLAXIS
     Dosage: 500 MG, ORAL
     Route: 048
     Dates: start: 20040319, end: 20040320
  2. DEXACAP (CAPTOPRIL) [Concomitant]
  3. FARMABES (DILTIAZEM) [Concomitant]
  4. ASPILET (ACETYLSALICYLIC ACID) [Concomitant]
  5. TORADOL [Concomitant]
  6. TRAMAL (TRAMADOL HYDROCHLORIDE) [Concomitant]

REACTIONS (15)
  - BACK PAIN [None]
  - BAND NEUTROPHIL COUNT INCREASED [None]
  - BLOOD GLUCOSE INCREASED [None]
  - BLOOD PRESSURE DECREASED [None]
  - BLOOD UREA INCREASED [None]
  - BRONCHOPNEUMONIA [None]
  - CARDIAC FAILURE [None]
  - CORONARY ARTERY ATHEROSCLEROSIS [None]
  - DYSPNOEA [None]
  - HAEMOGLOBIN DECREASED [None]
  - LYMPHOCYTE COUNT DECREASED [None]
  - MONOCYTE COUNT DECREASED [None]
  - OEDEMA PERIPHERAL [None]
  - URINARY TRACT INFECTION [None]
  - WHITE BLOOD CELL COUNT INCREASED [None]
